FAERS Safety Report 14583568 (Version 1)
Quarter: 2018Q1

REPORT INFORMATION
  Report Type: Spontaneous
  Country: FR (occurrence: FR)
  Receive Date: 20180228
  Receipt Date: 20180228
  Transmission Date: 20180509
  Serious: Yes (Life-Threatening, Hospitalization)
  Sender: FDA-Public Use
  Company Number: FR-OTSUKA-DJ20105565

PATIENT

DRUGS (4)
  1. ABILIFY [Suspect]
     Active Substance: ARIPIPRAZOLE
     Route: 065
  2. DEPAKOTE [Concomitant]
     Active Substance: DIVALPROEX SODIUM
     Route: 065
  3. ABILIFY [Suspect]
     Active Substance: ARIPIPRAZOLE
     Route: 065
  4. LARGACTIL [Concomitant]
     Active Substance: CHLORPROMAZINE
     Route: 065

REACTIONS (2)
  - Diabetes insipidus [Unknown]
  - Pancreatitis acute [Unknown]
